FAERS Safety Report 25553285 (Version 1)
Quarter: 2025Q3

REPORT INFORMATION
  Report Type: Other
  Country: EU (occurrence: EU)
  Receive Date: 20250715
  Receipt Date: 20250715
  Transmission Date: 20251020
  Serious: Yes (Hospitalization)
  Sender: ZYDUS PHARM
  Company Number: None

PATIENT

DRUGS (3)
  1. PREGABALIN [Suspect]
     Active Substance: PREGABALIN
     Indication: Product used for unknown indication
     Route: 048
     Dates: end: 202506
  2. TRAMADOL [Suspect]
     Active Substance: TRAMADOL
     Indication: Product used for unknown indication
     Route: 065
     Dates: end: 202504
  3. NITROUS OXIDE [Suspect]
     Active Substance: NITROUS OXIDE
     Indication: Product used for unknown indication
     Dates: start: 2021, end: 202504

REACTIONS (4)
  - Drug withdrawal maintenance therapy [Unknown]
  - Cognitive disorder [Recovering/Resolving]
  - Paraesthesia [Recovering/Resolving]
  - Substance dependence [Unknown]

NARRATIVE: CASE EVENT DATE: 20250301
